FAERS Safety Report 9699410 (Version 2)
Quarter: 2013Q4

REPORT INFORMATION
  Report Type: Spontaneous
  Country: US (occurrence: US)
  Receive Date: 20131120
  Receipt Date: 20131120
  Transmission Date: 20140711
  Serious: No
  Sender: FDA-Public Use
  Company Number: US-TEVA-366177USA

PATIENT
  Age: 30 Year
  Sex: Female
  Weight: 72.19 kg

DRUGS (4)
  1. PARAGARD 380A [Suspect]
     Indication: CONTRACEPTION
     Route: 015
     Dates: start: 20120918, end: 20121021
  2. CLARITIN [Concomitant]
     Indication: SEASONAL ALLERGY
  3. ZYRTEC [Concomitant]
     Indication: SEASONAL ALLERGY
  4. ZOLOFT [Concomitant]
     Indication: DEPRESSION

REACTIONS (1)
  - Device expulsion [Recovered/Resolved]
